FAERS Safety Report 4842770-4 (Version None)
Quarter: 2005Q4

REPORT INFORMATION
  Report Type: 
  Country: None (occurrence: None)
  Receive Date: 20051128
  Receipt Date: 20051116
  Transmission Date: 20060501
  Serious: No
  Sender: FDA-Public Use
  Company Number: CLOF-10160

PATIENT
  Age: 12 Year
  Sex: Female

DRUGS (8)
  1. CLOFARABINE [Suspect]
     Indication: ACUTE LYMPHOCYTIC LEUKAEMIA
     Dosage: 53.57 MG/M2 QD X 5 IV
     Route: 042
     Dates: start: 20051107, end: 20051111
  2. VANCOMYCIN [Concomitant]
  3. AMPHOTERICIN B [Concomitant]
  4. GENTAMICIN [Concomitant]
  5. BACTRIM DS [Concomitant]
  6. ATIVAN [Concomitant]
  7. ZOLOFT [Concomitant]
  8. SOLU-MEDROL [Concomitant]

REACTIONS (2)
  - CONVULSION [None]
  - HYPONATRAEMIA [None]
